FAERS Safety Report 7437616-4 (Version None)
Quarter: 2011Q2

REPORT INFORMATION
  Report Type: 
  Country: None (occurrence: None)
  Receive Date: 20110426
  Receipt Date: 20110419
  Transmission Date: 20111010
  Serious: Yes (Hospitalization)
  Sender: FDA-Public Use
  Company Number: US-ABBOTT-11P-163-0720283-00

PATIENT
  Age: 66 Year
  Sex: Female

DRUGS (1)
  1. DEPAKENE [Suspect]
     Indication: PRODUCT USED FOR UNKNOWN INDICATION
     Dosage: 2250 MG DAILY DOSE

REACTIONS (3)
  - COELIAC DISEASE [None]
  - DRUG LEVEL FLUCTUATING [None]
  - SCHIZOAFFECTIVE DISORDER [None]
